FAERS Safety Report 10216350 (Version 2)
Quarter: 2014Q2

REPORT INFORMATION
  Report Type: Spontaneous
  Country: US (occurrence: US)
  Receive Date: 20140604
  Receipt Date: 20140604
  Transmission Date: 20141212
  Serious: Yes (Other)
  Sender: FDA-Public Use
  Company Number: US-JNJFOC-20121200180

PATIENT
  Sex: Female

DRUGS (4)
  1. LEVAQUIN [Suspect]
     Indication: URINARY TRACT INFECTION
     Route: 048
     Dates: start: 200311
  2. LEVAQUIN [Suspect]
     Indication: URINARY TRACT INFECTION
     Route: 048
     Dates: start: 200309
  3. LEVAQUIN [Suspect]
     Indication: URINARY TRACT INFECTION
     Dosage: LEVOFLOXACIN 3 COURSES FOR 10 CONSECUTIVE DAYS EACH IN JULY 2003, SEP-2003 AND NOV-2003.
     Route: 048
     Dates: start: 200307
  4. CIPROFLOXACIN [Suspect]
     Indication: PRODUCT USED FOR UNKNOWN INDICATION
     Route: 048

REACTIONS (9)
  - Rotator cuff syndrome [Recovering/Resolving]
  - Tenosynovitis [Recovering/Resolving]
  - Tendon rupture [Recovering/Resolving]
  - Rotator cuff syndrome [Recovering/Resolving]
  - Rotator cuff syndrome [Recovering/Resolving]
  - Tendon rupture [Unknown]
  - Muscle rupture [Unknown]
  - Urticaria [Unknown]
  - Eye pain [Unknown]
